FAERS Safety Report 8552816-8 (Version None)
Quarter: 2012Q3

REPORT INFORMATION
  Report Type: 
  Country: None (occurrence: None)
  Receive Date: 20120731
  Receipt Date: 20120726
  Transmission Date: 20120928
  Serious: Yes (Other)
  Sender: FDA-Public Use
  Company Number: PHHY2012JP055792

PATIENT
  Age: 76 Year
  Sex: Female

DRUGS (4)
  1. ZOMETA [Suspect]
     Indication: METASTASES TO BONE
     Dosage: 4MG PER ADMINISTRATION
     Route: 041
     Dates: start: 20080401, end: 20110601
  2. AROMASIN [Concomitant]
     Dosage: 25 MG
     Dates: start: 20101001, end: 20111101
  3. ARIMIDEX [Concomitant]
     Dosage: 1 MG
     Route: 048
     Dates: start: 20080401, end: 20101001
  4. HERCEPTIN [Concomitant]
     Route: 042

REACTIONS (7)
  - NEOPLASM MALIGNANT [None]
  - HAEMOGLOBIN DECREASED [None]
  - NEOPLASM PROGRESSION [None]
  - RECTAL CANCER [None]
  - PERIODONTAL DISEASE [None]
  - GASTRIC CANCER [None]
  - METASTASES TO PERITONEUM [None]
